FAERS Safety Report 23384552 (Version 1)
Quarter: 2024Q1

REPORT INFORMATION
  Report Type: Spontaneous
  Country: US (occurrence: US)
  Receive Date: 20240109
  Receipt Date: 20240109
  Transmission Date: 20240410
  Serious: No
  Sender: FDA-Public Use
  Company Number: US-Merck Healthcare KGaA-2024000742

PATIENT
  Age: 39 Year
  Sex: Female

DRUGS (1)
  1. MAVENCLAD [Suspect]
     Active Substance: CLADRIBINE
     Indication: Multiple sclerosis
     Route: 048

REACTIONS (6)
  - Blood iron decreased [Unknown]
  - Eye swelling [Unknown]
  - Memory impairment [Unknown]
  - Speech disorder [Unknown]
  - Hypoaesthesia [Unknown]
  - Hypoaesthesia oral [Unknown]
